FAERS Safety Report 23929165 (Version 2)
Quarter: 2024Q2

REPORT INFORMATION
  Report Type: Report from Study
  Country: US (occurrence: US)
  Receive Date: 20240601
  Receipt Date: 20240618
  Transmission Date: 20240716
  Serious: Yes (Hospitalization, Other)
  Sender: FDA-Public Use
  Company Number: US-ABBVIE-5781927

PATIENT
  Sex: Male

DRUGS (2)
  1. DUOPA [Suspect]
     Active Substance: CARBIDOPA\LEVODOPA
     Indication: Parkinson^s disease
     Dosage: DUOPA (100ML X 7) 4.63-20MG/ MORNING DOSE: 11 ML, CONTINUOUS DOSE: 3.1 ML/HR, EXTRA DOSE: 1.5 ML?...
     Route: 050
     Dates: start: 20230217
  2. DUOPA [Suspect]
     Active Substance: CARBIDOPA\LEVODOPA
     Route: 050

REACTIONS (2)
  - Seizure [Unknown]
  - Mental status changes [Unknown]
